FAERS Safety Report 15895772 (Version 1)
Quarter: 2019Q1

REPORT INFORMATION
  Report Type: Spontaneous
  Country: US (occurrence: US)
  Receive Date: 20190108
  Receipt Date: 20190108
  Transmission Date: 20190417
  Serious: No
  Sender: FDA-Public Use
  Company Number: None

PATIENT
  Age: 19 Year
  Sex: Male
  Weight: 53.16 kg

DRUGS (2)
  1. VINCRISTINE [Concomitant]
     Active Substance: VINCRISTINE
  2. ERWINAZE [Suspect]
     Active Substance: ASPARAGINASE ERWINIA CHRYSANTHEMI
     Indication: T-CELL TYPE ACUTE LEUKAEMIA
     Route: 042
     Dates: start: 20101010, end: 20181217

REACTIONS (7)
  - Hyperhidrosis [None]
  - Hypotension [None]
  - Product quality issue [None]
  - Lip swelling [None]
  - Dyspnoea [None]
  - Erythema [None]
  - Oxygen saturation decreased [None]

NARRATIVE: CASE EVENT DATE: 20181217
